FAERS Safety Report 7384704-7 (Version None)
Quarter: 2011Q1

REPORT INFORMATION
  Report Type: 
  Country: None (occurrence: None)
  Receive Date: 20110330
  Receipt Date: 20110322
  Transmission Date: 20110831
  Serious: Yes (Hospitalization)
  Sender: FDA-Public Use
  Company Number: PHHY2011US23589

PATIENT
  Sex: Female
  Weight: 95 kg

DRUGS (7)
  1. CREON [Concomitant]
  2. ALBUTEROL [Concomitant]
  3. TOBI [Suspect]
     Indication: CYSTIC FIBROSIS
     Dosage: 300 MG BID FOR EVERY OTHER 28 DAYS
  4. HYPERSAL [Concomitant]
  5. MULTIVITAMIN [Concomitant]
  6. PREVACID [Concomitant]
  7. AZITHROMYCIN [Concomitant]

REACTIONS (2)
  - PULMONARY FUNCTION TEST DECREASED [None]
  - PNEUMONIA STAPHYLOCOCCAL [None]
